FAERS Safety Report 15428602 (Version 1)
Quarter: 2018Q3

REPORT INFORMATION
  Report Type: Spontaneous
  Country: CA (occurrence: CA)
  Receive Date: 20180926
  Receipt Date: 20180926
  Transmission Date: 20181010
  Serious: Yes (Other)
  Sender: FDA-Public Use
  Company Number: CA-AMGEN-CANSP2018132431

PATIENT
  Age: 18 Year
  Sex: Female

DRUGS (12)
  1. PREDNISONE. [Suspect]
     Active Substance: PREDNISONE
     Dosage: UNK
     Route: 065
  2. PREDNISONE. [Suspect]
     Active Substance: PREDNISONE
     Indication: BEHCET^S SYNDROME
     Dosage: 12.5 MG, UNK
     Route: 065
  3. PREDNISONE. [Suspect]
     Active Substance: PREDNISONE
     Dosage: 60.0 MG, UNK
     Route: 065
  4. METHOTREXATE. [Suspect]
     Active Substance: METHOTREXATE
     Indication: BEHCET^S SYNDROME
     Dosage: 20 MG, UNK
     Route: 058
  5. INFLIXIMAB [Suspect]
     Active Substance: INFLIXIMAB
     Indication: BEHCET^S SYNDROME
     Dosage: 5.0 MG/KG, UNK
     Route: 065
  6. ETANERCEPT [Suspect]
     Active Substance: ETANERCEPT
     Indication: BEHCET^S SYNDROME
     Dosage: UNK
     Route: 065
  7. AZATHIOPRINE. [Suspect]
     Active Substance: AZATHIOPRINE
     Indication: BEHCET^S SYNDROME
     Dosage: 125.0 MG, UNK
     Route: 065
  8. COLCHICINE. [Suspect]
     Active Substance: COLCHICINE
     Indication: BEHCET^S SYNDROME
     Dosage: UNK
     Route: 065
  9. PREDNISONE. [Suspect]
     Active Substance: PREDNISONE
     Dosage: 8 MG, UNK
     Route: 065
  10. CYCLOPHOSPHAMIDE. [Concomitant]
     Active Substance: CYCLOPHOSPHAMIDE
     Indication: BEHCET^S SYNDROME
     Dosage: UNK
     Route: 042
  11. PREDNISONE. [Suspect]
     Active Substance: PREDNISONE
     Dosage: 15.0 MG, UNK
     Route: 065
  12. RITUXIMAB. [Concomitant]
     Active Substance: RITUXIMAB
     Indication: BEHCET^S SYNDROME
     Dosage: 1000 MG, UNK

REACTIONS (4)
  - Cushingoid [Recovering/Resolving]
  - Drug ineffective [Recovering/Resolving]
  - Transaminases increased [Recovering/Resolving]
  - Weight increased [Recovering/Resolving]
